FAERS Safety Report 20984999 (Version 1)
Quarter: 2022Q2

REPORT INFORMATION
  Report Type: Report from Study
  Country: IT (occurrence: IT)
  Receive Date: 20220621
  Receipt Date: 20220621
  Transmission Date: 20220720
  Serious: Yes (Hospitalization)
  Sender: FDA-Public Use
  Company Number: None

PATIENT
  Age: 83 Year
  Sex: Female

DRUGS (2)
  1. AMLODIPINE [Suspect]
     Active Substance: AMLODIPINE BESYLATE
     Indication: Hypertension
     Dosage: UNIT DOSE : 10 MG , FREQUENCY TIME : 1 DAYS , ADDITIONAL INFORMATION : THERAPEUTIC ERROR
     Route: 048
  2. HYDROCHLOROTHIAZIDE\IRBESARTAN [Suspect]
     Active Substance: HYDROCHLOROTHIAZIDE\IRBESARTAN
     Indication: Hypertension
     Dosage: UNIT DOSE : 1 DF , FREQUENCY TIME : 1 DAYS , ADDITIONAL INFORMATION : THERAPEUTIC ERROR
     Route: 048

REACTIONS (3)
  - Haematoma [Recovering/Resolving]
  - Haemorrhagic infarction [Recovering/Resolving]
  - Medication error [Recovering/Resolving]

NARRATIVE: CASE EVENT DATE: 20220418
